FAERS Safety Report 13463577 (Version 2)
Quarter: 2017Q2

REPORT INFORMATION
  Report Type: Spontaneous
  Country: US (occurrence: US)
  Receive Date: 20170420
  Receipt Date: 20170522
  Transmission Date: 20170830
  Serious: Yes (Other)
  Sender: FDA-Public Use
  Company Number: US-JNJFOC-20170416775

PATIENT
  Age: 85 Year
  Sex: Male
  Weight: 76 kg

DRUGS (17)
  1. ZOFRAN [Concomitant]
     Active Substance: ONDANSETRON HYDROCHLORIDE
     Indication: NAUSEA
  2. FUROSEMIDE. [Concomitant]
     Active Substance: FUROSEMIDE
  3. FOLIC ACID. [Concomitant]
     Active Substance: FOLIC ACID
  4. PROTONIX [Concomitant]
     Active Substance: PANTOPRAZOLE SODIUM
  5. XIFAXAN [Concomitant]
     Active Substance: RIFAXIMIN
  6. LACTULOSE. [Concomitant]
     Active Substance: LACTULOSE
  7. CYPROHEPTADINE. [Concomitant]
     Active Substance: CYPROHEPTADINE
     Indication: APPETITE DISORDER
  8. DARZALEX [Suspect]
     Active Substance: DARATUMUMAB
     Indication: PLASMA CELL MYELOMA
     Dosage: ^1200MG/VIAL/400MG^
     Route: 042
     Dates: start: 20170413, end: 20170413
  9. HALDOL [Concomitant]
     Active Substance: HALOPERIDOL
     Indication: AGITATION
  10. DUONEB [Concomitant]
     Active Substance: ALBUTEROL SULFATE\IPRATROPIUM BROMIDE
  11. VITAMIN D3 [Concomitant]
     Active Substance: CHOLECALCIFEROL
  12. RESTORIL [Concomitant]
     Active Substance: TEMAZEPAM
     Indication: SLEEP DISORDER
     Dosage: AS NEEDED
  13. NORCO [Concomitant]
     Active Substance: ACETAMINOPHEN\HYDROCODONE BITARTRATE
     Indication: PAIN
  14. ACETAMINOPHEN. [Concomitant]
     Active Substance: ACETAMINOPHEN
  15. POTASSIUM [Concomitant]
     Active Substance: POTASSIUM
  16. ZOCOR [Concomitant]
     Active Substance: SIMVASTATIN
     Indication: BLOOD CHOLESTEROL INCREASED
  17. MAGNESIUM OXIDE. [Concomitant]
     Active Substance: MAGNESIUM OXIDE

REACTIONS (1)
  - Hypertension [Unknown]

NARRATIVE: CASE EVENT DATE: 20170413
